FAERS Safety Report 21369437 (Version 1)
Quarter: 2022Q3

REPORT INFORMATION
  Report Type: Spontaneous
  Country: US (occurrence: None)
  Receive Date: 20220922
  Receipt Date: 20220922
  Transmission Date: 20221027
  Serious: Yes (Disabling)
  Sender: FDA-Public Use
  Company Number: None

PATIENT
  Sex: 0

DRUGS (2)
  1. ABILIFY MAINTENA [Suspect]
     Active Substance: ARIPIPRAZOLE
  2. PROPRANOLOL [Suspect]
     Active Substance: PROPRANOLOL HYDROCHLORIDE

REACTIONS (7)
  - Tremor [None]
  - Musculoskeletal stiffness [None]
  - Somnolence [None]
  - Dizziness [None]
  - Dry eye [None]
  - Dry mouth [None]
  - Peripheral coldness [None]

NARRATIVE: CASE EVENT DATE: 20181102
